FAERS Safety Report 4451941-0 (Version None)
Quarter: 2004Q3

REPORT INFORMATION
  Report Type: 
  Country: None (occurrence: None)
  Receive Date: 20040916
  Receipt Date: 20040831
  Transmission Date: 20050211
  Serious: Yes (Hospitalization, Other)
  Sender: FDA-Public Use
  Company Number: 2004S1002589

PATIENT
  Age: 27 Year
  Sex: Male

DRUGS (1)
  1. HALOPERIDOL [Suspect]
     Indication: AGITATION
     Dosage: ORAL
     Route: 048
     Dates: start: 20040317

REACTIONS (2)
  - DYSTONIA [None]
  - LARYNGEAL DISORDER [None]
